FAERS Safety Report 17885383 (Version 1)
Quarter: 2020Q2

REPORT INFORMATION
  Report Type: Spontaneous
  Country: US (occurrence: US)
  Receive Date: 20200611
  Receipt Date: 20200611
  Transmission Date: 20200714
  Serious: Yes (Other)
  Sender: FDA-Public Use
  Company Number: None

PATIENT
  Age: 73 Year
  Sex: Male
  Weight: 68.8 kg

DRUGS (2)
  1. FLUOROURACIL (5-FU) [Suspect]
     Active Substance: FLUOROURACIL
  2. CADD LEGACY PLUS [Suspect]
     Active Substance: DEVICE
     Dates: start: 20200526, end: 20200529

REACTIONS (1)
  - Device infusion issue [None]

NARRATIVE: CASE EVENT DATE: 20200528
